FAERS Safety Report 5165176-X (Version None)
Quarter: 2006Q4

REPORT INFORMATION
  Report Type: 
  Country: None (occurrence: None)
  Receive Date: 20061127
  Receipt Date: 20061116
  Transmission Date: 20070319
  Serious: Yes (Life-Threatening, Hospitalization, Other)
  Sender: FDA-Public Use
  Company Number: GXKR2006DE07408

PATIENT
  Age: 40 Year
  Sex: Male

DRUGS (2)
  1. MIRTAZAPINE [Suspect]
     Indication: DEPRESSION
     Dosage: SEE IMAGE
  2. RISPERIDONE [Suspect]
     Indication: SCHIZOPHRENIA
     Dosage: SEE IMAGE

REACTIONS (5)
  - EXTRAPYRAMIDAL DISORDER [None]
  - PAIN IN EXTREMITY [None]
  - PULMONARY EMBOLISM [None]
  - RESPIRATORY DISORDER [None]
  - RHABDOMYOLYSIS [None]
